FAERS Safety Report 24922409 (Version 1)
Quarter: 2025Q1

REPORT INFORMATION
  Report Type: Spontaneous
  Country: US (occurrence: None)
  Receive Date: 20250203
  Receipt Date: 20250203
  Transmission Date: 20250409
  Serious: Yes (unspecified)
  Sender: FDA-CTU
  Company Number: None

PATIENT
  Age: 77 Year
  Sex: Male
  Weight: 66.6 kg

DRUGS (5)
  1. LEVETIRACETAM [Suspect]
     Active Substance: LEVETIRACETAM
     Indication: Epilepsy
     Dosage: 1 CAPSULE EVERY 12 HOURS ORAL
     Route: 048
     Dates: start: 20180515, end: 20250131
  2. VALIUM [Concomitant]
     Active Substance: DIAZEPAM
  3. REPATHA [Concomitant]
     Active Substance: EVOLOCUMAB
  4. LIDOCAINE [Concomitant]
     Active Substance: LIDOCAINE
  5. VITAMINS [Concomitant]
     Active Substance: VITAMINS

REACTIONS (3)
  - Eczema [None]
  - Photosensitivity reaction [None]
  - Therapy non-responder [None]

NARRATIVE: CASE EVENT DATE: 20180515
